FAERS Safety Report 18324632 (Version 1)
Quarter: 2020Q3

REPORT INFORMATION
  Report Type: Other
  Country: DE (occurrence: DE)
  Receive Date: 20200929
  Receipt Date: 20200929
  Transmission Date: 20201103
  Serious: Yes (Life-Threatening, Hospitalization)
  Sender: FDA-Public Use
  Company Number: DE-COLLEGIUM PHARMACEUTICAL, INC.-2020CGM00224

PATIENT
  Age: 58 Year
  Sex: Female

DRUGS (13)
  1. NUCYNTA ER [Suspect]
     Active Substance: TAPENTADOL HYDROCHLORIDE
     Indication: PRODUCT USED FOR UNKNOWN INDICATION
     Dosage: 50 MG, 2X/DAY
     Route: 048
  2. PREGABALIN. [Concomitant]
     Active Substance: PREGABALIN
  3. ALLOPURINOL. [Concomitant]
     Active Substance: ALLOPURINOL
  4. PROGESTERONE. [Concomitant]
     Active Substance: PROGESTERONE
  5. METOPROLOL. [Concomitant]
     Active Substance: METOPROLOL
  6. ACETYLSALICYLSAEURE [Concomitant]
     Active Substance: ASPIRIN
  7. SPIRONOLACTONE. [Suspect]
     Active Substance: SPIRONOLACTONE
     Indication: PRODUCT USED FOR UNKNOWN INDICATION
     Dosage: 25 MG, 1X/DAY
     Route: 048
  8. VALSARTAN. [Concomitant]
     Active Substance: VALSARTAN
  9. TORASEMID [Suspect]
     Active Substance: TORSEMIDE
     Indication: PRODUCT USED FOR UNKNOWN INDICATION
     Dosage: 30 MG, 1X/DAY
     Route: 048
  10. TIZANIDINE. [Suspect]
     Active Substance: TIZANIDINE
     Indication: PRODUCT USED FOR UNKNOWN INDICATION
     Dosage: 2 MG, 2X/DAY
     Route: 048
  11. DOXEPIN [Concomitant]
     Active Substance: DOXEPIN
  12. LEVOTHYROXINE SODIUM. [Concomitant]
     Active Substance: LEVOTHYROXINE SODIUM
  13. ATORVASTATIN [Concomitant]
     Active Substance: ATORVASTATIN

REACTIONS (9)
  - Dehydration [Unknown]
  - Hypotension [Unknown]
  - Condition aggravated [Unknown]
  - Depressed level of consciousness [Unknown]
  - Electrolyte imbalance [Unknown]
  - General physical health deterioration [Unknown]
  - Diarrhoea [Unknown]
  - Thirst [Unknown]
  - Disorientation [Unknown]
